FAERS Safety Report 10504677 (Version 3)
Quarter: 2015Q2

REPORT INFORMATION
  Report Type: Spontaneous
  Country: US (occurrence: US)
  Receive Date: 20141008
  Receipt Date: 20150521
  Transmission Date: 20150821
  Serious: Yes (Hospitalization, Other)
  Sender: FDA-Public Use
  Company Number: US-BAYER-2014-148694

PATIENT
  Age: 26 Year
  Sex: Female
  Weight: 90.7 kg

DRUGS (5)
  1. LEVOFLOXACIN. [Concomitant]
     Active Substance: LEVOFLOXACIN
     Indication: PELVIC INFLAMMATORY DISEASE
  2. DOXYCYCLINE. [Concomitant]
     Active Substance: DOXYCYCLINE
     Indication: PELVIC INFLAMMATORY DISEASE
  3. LYRICA [Concomitant]
     Active Substance: PREGABALIN
     Indication: FIBROMYALGIA
     Dosage: UNK
     Dates: start: 200801
  4. MIRENA [Suspect]
     Active Substance: LEVONORGESTREL
     Indication: CONTRACEPTION
     Dosage: 20 MCG/24HR, CONT
     Route: 015
     Dates: start: 20101130, end: 201203
  5. MIRENA [Suspect]
     Active Substance: LEVONORGESTREL
     Indication: CONTRACEPTION
     Dosage: 20 MCG/24HR, CONT
     Route: 015
     Dates: start: 20120319, end: 20120928

REACTIONS (16)
  - Pelvic inflammatory disease [None]
  - Injury [None]
  - Anxiety [None]
  - Internal injury [None]
  - Depression [None]
  - Depressed mood [None]
  - Uterine perforation [None]
  - Genital haemorrhage [None]
  - Emotional distress [None]
  - Discomfort [None]
  - Device issue [None]
  - Device dislocation [None]
  - Pelvic pain [None]
  - Fear [None]
  - Abdominal pain [None]
  - Pain [None]

NARRATIVE: CASE EVENT DATE: 20110328
